FAERS Safety Report 18591342 (Version 1)
Quarter: 2020Q4

REPORT INFORMATION
  Report Type: Spontaneous
  Country: FR (occurrence: FR)
  Receive Date: 20201208
  Receipt Date: 20201208
  Transmission Date: 20210114
  Serious: Yes (Hospitalization)
  Sender: FDA-Public Use
  Company Number: FR-PFIZER INC-2020477952

PATIENT
  Age: 44 Year
  Sex: Female
  Weight: 49 kg

DRUGS (8)
  1. MIDAZOLAM. [Suspect]
     Active Substance: MIDAZOLAM
     Indication: ANAESTHESIA
     Dosage: 2 MG, 1X/DAY
     Route: 040
     Dates: start: 20201117, end: 20201117
  2. KETAMINE [Suspect]
     Active Substance: KETAMINE
     Indication: ANAESTHESIA
     Dosage: 20 MG, 1X/DAY
     Route: 040
     Dates: start: 20201117, end: 20201117
  3. EFFERALGAN CODEINE [Suspect]
     Active Substance: ACETAMINOPHEN\CODEINE PHOSPHATE
     Indication: PAIN
     Dosage: UNK (4G /2D)
     Route: 048
     Dates: end: 20201117
  4. TRAMADOL. [Suspect]
     Active Substance: TRAMADOL
     Indication: PAIN
     Dosage: UNK (LP150 300MG/2D)
     Route: 048
     Dates: end: 20201117
  5. SUFENTANIL [Suspect]
     Active Substance: SUFENTANIL
     Indication: ANAESTHESIA
     Dosage: 20 MG, SINGLE
     Route: 040
     Dates: start: 20201117, end: 20201117
  6. ACUPAN [Suspect]
     Active Substance: NEFOPAM HYDROCHLORIDE
     Indication: ANAESTHESIA
     Dosage: 20 MG, 1X/DAY
     Route: 040
     Dates: start: 20201117, end: 20201117
  7. PROPOFOL. [Suspect]
     Active Substance: PROPOFOL
     Indication: ANAESTHESIA
     Dosage: 150 MG, SINGLE
     Route: 040
     Dates: start: 20201117, end: 20201117
  8. ATRACURIUM BESILATE [Suspect]
     Active Substance: ATRACURIUM BESYLATE
     Indication: ANAESTHESIA
     Dosage: 50 MG, SINGLE
     Route: 040
     Dates: start: 20201117, end: 20201117

REACTIONS (1)
  - Anticholinergic syndrome [Recovered/Resolved]

NARRATIVE: CASE EVENT DATE: 20201117
